FAERS Safety Report 7715519-5 (Version None)
Quarter: 2011Q3

REPORT INFORMATION
  Report Type: 
  Country: None (occurrence: None)
  Receive Date: 20110810
  Receipt Date: 20110419
  Transmission Date: 20111222
  Serious: No
  Sender: FDA-Public Use
  Company Number: 1000020272

PATIENT
  Age: 69 Year
  Sex: Female

DRUGS (5)
  1. SUPPLEMENTS NOS (SUPPLEMENTS NOS) (SUPPLEMENTS NOS) [Concomitant]
  2. KONOPIN (CLONAZEPAM) (CLONAZEPAM) [Concomitant]
  3. SAVELLA [Suspect]
     Indication: FIBROMYALGIA
     Dosage: 12.5 MG (12.5 MG, 1 IN 1 D), ORAL,  25 MG (12.5 MG, 2 IN 1 D), ORAL
     Route: 048
     Dates: start: 20110417, end: 20110418
  4. SAVELLA [Suspect]
     Indication: FIBROMYALGIA
     Dosage: 12.5 MG (12.5 MG, 1 IN 1 D), ORAL,  25 MG (12.5 MG, 2 IN 1 D), ORAL
     Route: 048
     Dates: start: 20110419
  5. AMBIEN [Concomitant]

REACTIONS (1)
  - TERMINAL INSOMNIA [None]
